FAERS Safety Report 7250260-7 (Version None)
Quarter: 2011Q1

REPORT INFORMATION
  Report Type: 
  Country: None (occurrence: None)
  Receive Date: 20110121
  Receipt Date: 20110121
  Transmission Date: 20110831
  Serious: No
  Sender: FDA-Public Use
  Company Number: None

PATIENT
  Sex: Female
  Weight: 45.5 kg

DRUGS (1)
  1. STERILE ALCOHOL PREP PAD [Suspect]
     Indication: INJECTION
     Dosage: 1 PAD DAILY COPAXONE INJECTION LOCATION DAILY

REACTIONS (1)
  - NO ADVERSE EVENT [None]
